FAERS Safety Report 8187046 (Version 2)
Quarter: 2014Q1

REPORT INFORMATION
  Report Type: Spontaneous
  Country: US (occurrence: US)
  Receive Date: 20111018
  Receipt Date: 20140305
  Transmission Date: 20141002
  Serious: No
  Sender: FDA-Public Use
  Company Number: US-ASTRAZENECA-2011SE25325

PATIENT
  Age: 89 Year
  Sex: Male
  Weight: 83.9 kg

DRUGS (24)
  1. SYMBICORT [Suspect]
     Indication: ASTHMA
     Dosage: 80/4.5,2 PUFFS, TWO TIMES A DAY
     Route: 055
  2. SYMBICORT [Suspect]
     Indication: MULTIPLE ALLERGIES
     Dosage: 80/4.5,2 PUFFS, TWO TIMES A DAY
     Route: 055
  3. SYMBICORT [Suspect]
     Indication: ASTHMA
     Dosage: 160/4.5 MCG,2 PUFF,TWO TIMES A DAY
     Route: 055
  4. SYMBICORT [Suspect]
     Indication: MULTIPLE ALLERGIES
     Dosage: 160/4.5 MCG,2 PUFF,TWO TIMES A DAY
     Route: 055
  5. SYMBICORT [Suspect]
     Indication: ASTHMA
     Dosage: 160/4.5 MCG,1 PUFF,TWO TIMES A DAY
     Route: 055
     Dates: start: 201103
  6. SYMBICORT [Suspect]
     Indication: MULTIPLE ALLERGIES
     Dosage: 160/4.5 MCG,1 PUFF,TWO TIMES A DAY
     Route: 055
     Dates: start: 201103
  7. SYMBICORT [Suspect]
     Indication: ASTHMA
     Dosage: 160/4.5 MCG, 1 PUFF, DAILY
     Route: 055
  8. SYMBICORT [Suspect]
     Indication: MULTIPLE ALLERGIES
     Dosage: 160/4.5 MCG, 1 PUFF, DAILY
     Route: 055
  9. ATENOLOL [Suspect]
     Indication: ATRIAL FIBRILLATION
     Route: 065
  10. ATENOLOL [Suspect]
     Indication: CARDIAC ASSISTANCE DEVICE USER
     Route: 065
  11. ATENOLOL [Suspect]
     Indication: CARDIAC DISORDER
     Route: 065
  12. LISINOPRIL [Suspect]
     Indication: CARDIAC DISORDER
     Route: 048
  13. METOPROLOL [Suspect]
     Indication: ATRIAL FIBRILLATION
     Route: 065
  14. METOPROLOL [Suspect]
     Indication: CARDIAC ASSISTANCE DEVICE USER
     Route: 065
  15. CRESTOR [Concomitant]
  16. PAXIL [Concomitant]
     Indication: DEPRESSION
  17. LORATADINE [Concomitant]
     Indication: MULTIPLE ALLERGIES
  18. HCTZ [Concomitant]
     Indication: DIURETIC THERAPY
  19. SINGULAIR [Concomitant]
     Indication: HYPERSENSITIVITY
  20. WARFARIN [Concomitant]
     Indication: ATRIAL FIBRILLATION
  21. STOOL SOFTNER [Concomitant]
  22. LIPITOR [Concomitant]
     Indication: BLOOD CHOLESTEROL ABNORMAL
  23. AMOXICILLAN [Concomitant]
     Indication: PROPHYLAXIS
  24. FIBER CAPS [Concomitant]

REACTIONS (7)
  - Prostatic specific antigen increased [Unknown]
  - Disease recurrence [Unknown]
  - Dysphonia [Unknown]
  - Pharyngeal disorder [Unknown]
  - Dysphonia [Unknown]
  - Off label use [Unknown]
  - Off label use [Unknown]
